FAERS Safety Report 13707432 (Version 2)
Quarter: 2017Q3

REPORT INFORMATION
  Report Type: Spontaneous
  Country: US (occurrence: US)
  Receive Date: 20170630
  Receipt Date: 20170705
  Transmission Date: 20171127
  Serious: No
  Sender: FDA-Public Use
  Company Number: US-PFIZER INC-2017081423

PATIENT
  Age: 62 Year
  Sex: Male
  Weight: 83.9 kg

DRUGS (15)
  1. REQUIP [Concomitant]
     Active Substance: ROPINIROLE HYDROCHLORIDE
     Indication: SLEEP DISORDER
     Dosage: 1 MG, 1X/DAY (NIGHT)
     Route: 048
  2. LYRICA [Suspect]
     Active Substance: PREGABALIN
     Indication: NEUROPATHY PERIPHERAL
     Dosage: 200 MG, 2X/DAY
     Route: 048
  3. CENTRAL-VITE [Concomitant]
     Dosage: 1 DF, 1X/DAY (1/2 MORNING, 1/2 NIGHT)
  4. LECITHIN [Concomitant]
     Active Substance: LECITHIN
     Indication: NERVOUS SYSTEM DISORDER
     Dosage: 1200 MG, 1X/DAY (1 EVERY MORNING)
  5. FLAXSEED [Concomitant]
     Active Substance: FLAX SEED
     Indication: ARTHROPATHY
  6. FISH OIL [Concomitant]
     Active Substance: FISH OIL
     Indication: BLOOD CHOLESTEROL
     Dosage: 1000 MG, 1X/DAY (1 EVERY MORNING)
  7. WELLBUTRIN XL [Concomitant]
     Active Substance: BUPROPION HYDROCHLORIDE
     Indication: DEPRESSION
     Dosage: 300 MG, 1X/DAY [1 DAILY (MORNING)]
  8. ASPIRIN. [Concomitant]
     Active Substance: ASPIRIN
     Indication: CARDIAC DISORDER
     Dosage: 325 MG, ALTERNATE DAY (1 EVERY OTHER NIGHT)
  9. FLAXSEED [Concomitant]
     Active Substance: FLAX SEED
     Indication: CARDIAC DISORDER
     Dosage: 1200 MG, 1X/DAY (1 EVERY MORNING)
  10. ASPIRIN. [Concomitant]
     Active Substance: ASPIRIN
     Indication: HAEMOGLOBIN ABNORMAL
  11. LYRICA [Suspect]
     Active Substance: PREGABALIN
     Indication: NERVE INJURY
     Dosage: 150 MG, 2X/DAY
     Route: 048
  12. NIACIN. [Concomitant]
     Active Substance: NIACIN
     Dosage: 500 MG, ALTERNATE DAY (1 EVERY OTHER NIGHT)
  13. FLAXSEED [Concomitant]
     Active Substance: FLAX SEED
     Indication: BLOOD CHOLESTEROL
  14. VITAMIN D3 [Concomitant]
     Active Substance: CHOLECALCIFEROL
     Indication: BONE DISORDER
     Dosage: 1000 IU, 1X/DAY (1 EVERY MORNING)
  15. RED YEAST RICE [Concomitant]
     Active Substance: DIETARY SUPPLEMENT
     Indication: BLOOD CHOLESTEROL
     Dosage: 600 MG, 1X/DAY (1 EVERY NIGHT)

REACTIONS (4)
  - Product use in unapproved indication [Unknown]
  - Sinusitis [Recovered/Resolved]
  - Nasopharyngitis [Unknown]
  - Respiratory tract congestion [Recovered/Resolved]

NARRATIVE: CASE EVENT DATE: 20170604
